FAERS Safety Report 9788611 (Version 2)
Quarter: 2014Q1

REPORT INFORMATION
  Report Type: Spontaneous
  Country: US (occurrence: US)
  Receive Date: 20131230
  Receipt Date: 20140202
  Transmission Date: 20141002
  Serious: Yes (Other)
  Sender: FDA-Public Use
  Company Number: US-TEVA-451636USA

PATIENT
  Age: 43 Year
  Sex: Female
  Weight: 76.73 kg

DRUGS (3)
  1. PARAGARD 380A [Suspect]
     Indication: CONTRACEPTION
     Route: 015
     Dates: start: 201212, end: 20130828
  2. SYNTHROID [Concomitant]
  3. EFFEXOR [Concomitant]
     Indication: ANXIETY

REACTIONS (3)
  - Haemorrhage [Recovered/Resolved]
  - Blood oestrogen abnormal [Recovered/Resolved]
  - Uterine spasm [Unknown]
